FAERS Safety Report 8367732-4 (Version None)
Quarter: 2012Q2

REPORT INFORMATION
  Report Type: 
  Country: None (occurrence: None)
  Receive Date: 20120517
  Receipt Date: 20120511
  Transmission Date: 20120825
  Serious: Yes (Disabling)
  Sender: FDA-Public Use
  Company Number: US-GLAXOSMITHKLINE-A0977331A

PATIENT
  Sex: Female

DRUGS (2)
  1. AMBIEN [Concomitant]
  2. LAMICTAL [Suspect]
     Indication: BIPOLAR DISORDER
     Dosage: 200MG TWICE PER DAY
     Route: 048
     Dates: start: 20090501

REACTIONS (6)
  - GRIMACING [None]
  - PROTRUSION TONGUE [None]
  - TONGUE PARALYSIS [None]
  - DYSKINESIA [None]
  - RESTLESSNESS [None]
  - TARDIVE DYSKINESIA [None]
